FAERS Safety Report 25738040 (Version 1)
Quarter: 2025Q3

REPORT INFORMATION
  Report Type: Report from Study
  Country: US (occurrence: US)
  Receive Date: 20250829
  Receipt Date: 20250829
  Transmission Date: 20251020
  Serious: Yes (Other)
  Sender: ABBVIE
  Company Number: US-ABBVIE-5744874

PATIENT
  Age: 74 Year
  Sex: Female

DRUGS (2)
  1. RINVOQ [Suspect]
     Active Substance: UPADACITINIB
     Indication: Dermatitis atopic
     Route: 048
     Dates: start: 20240122
  2. RINVOQ [Suspect]
     Active Substance: UPADACITINIB
     Indication: Dermatitis atopic
     Route: 048
     Dates: start: 20240416

REACTIONS (9)
  - Hip arthroplasty [Recovered/Resolved]
  - Skin exfoliation [Not Recovered/Not Resolved]
  - Skin exfoliation [Unknown]
  - Dry skin [Unknown]
  - Pain of skin [Unknown]
  - Pain in extremity [Unknown]
  - Erythema [Unknown]
  - Skin haemorrhage [Unknown]
  - Skin induration [Unknown]

NARRATIVE: CASE EVENT DATE: 20240101
